FAERS Safety Report 22305107 (Version 1)
Quarter: 2023Q2

REPORT INFORMATION
  Report Type: Other
  Country: US (occurrence: None)
  Receive Date: 20230510
  Receipt Date: 20230510
  Transmission Date: 20230721
  Serious: Yes (Other)
  Sender: FDA-Public Use
  Company Number: US-ROCHE-3323892

PATIENT
  Age: 66 Year
  Sex: Female
  Weight: 49.940 kg

DRUGS (8)
  1. OCREVUS [Suspect]
     Active Substance: OCRELIZUMAB
     Indication: Relapsing-remitting multiple sclerosis
     Dosage: INFUSE 300MG DAY 1, 300MG DAY 15 AND THEN INFUSE 600MG EVERY 6 MONTHS, LAST DATE OF TREATMENT: 03/DE
     Route: 042
     Dates: start: 201705
  2. CYMBALTA [Concomitant]
     Active Substance: DULOXETINE HYDROCHLORIDE
  3. PROZAC [Concomitant]
     Active Substance: FLUOXETINE HYDROCHLORIDE
  4. TOPAMAX [Concomitant]
     Active Substance: TOPIRAMATE
  5. VALTREX [Concomitant]
     Active Substance: VALACYCLOVIR HYDROCHLORIDE
  6. ZOFRAN [Concomitant]
     Active Substance: ONDANSETRON HYDROCHLORIDE
  7. OMEPRAZOLE [Concomitant]
     Active Substance: OMEPRAZOLE
  8. TYSABRI [Concomitant]
     Active Substance: NATALIZUMAB

REACTIONS (12)
  - Fall [Unknown]
  - Wrist fracture [Recovered/Resolved]
  - Barrett^s oesophagus [Not Recovered/Not Resolved]
  - Exostosis [Recovered/Resolved]
  - Cartilage injury [Recovered/Resolved]
  - Intervertebral disc protrusion [Not Recovered/Not Resolved]
  - Fractured coccyx [Recovered/Resolved]
  - Wrist fracture [Recovered/Resolved]
  - Immunodeficiency [Not Recovered/Not Resolved]
  - Oral herpes [Recovered/Resolved]
  - Depression [Not Recovered/Not Resolved]
  - Migraine [Not Recovered/Not Resolved]

NARRATIVE: CASE EVENT DATE: 20170501
